FAERS Safety Report 17793937 (Version 1)
Quarter: 2020Q2

REPORT INFORMATION
  Report Type: Spontaneous
  Country: AZ (occurrence: AZ)
  Receive Date: 20200515
  Receipt Date: 20200515
  Transmission Date: 20200714
  Serious: Yes (Other)
  Sender: FDA-Public Use
  Company Number: NVSC2020AZ130880

PATIENT
  Sex: Male

DRUGS (1)
  1. GLIVEC [Suspect]
     Active Substance: IMATINIB MESYLATE
     Indication: CHRONIC MYELOID LEUKAEMIA
     Dosage: 400 MG, UNKNOWN (4 X 100MG)
     Route: 065

REACTIONS (7)
  - Adenocarcinoma pancreas [Unknown]
  - Second primary malignancy [Unknown]
  - Lymphadenopathy [Unknown]
  - Metastases to liver [Unknown]
  - Abdominal pain upper [Unknown]
  - Abdominal pain [Unknown]
  - Dysphagia [Unknown]
